FAERS Safety Report 11889086 (Version 2)
Quarter: 2016Q1

REPORT INFORMATION
  Report Type: Report from Study
  Country: DE (occurrence: DE)
  Receive Date: 20160105
  Receipt Date: 20160118
  Transmission Date: 20160526
  Serious: Yes (Other)
  Sender: FDA-Public Use
  Company Number: DE-BIOGEN-2016BI00167333

PATIENT
  Age: 35 Year
  Sex: Male

DRUGS (1)
  1. PLEGRIDY [Suspect]
     Active Substance: PEGINTERFERON BETA-1A
     Indication: MULTIPLE SCLEROSIS
     Route: 058
     Dates: start: 20151207, end: 20151221

REACTIONS (3)
  - Headache [Recovered/Resolved]
  - Chills [Recovered/Resolved]
  - Aggression [Recovered/Resolved with Sequelae]

NARRATIVE: CASE EVENT DATE: 20151208
